FAERS Safety Report 6534319-5 (Version None)
Quarter: 2010Q1

REPORT INFORMATION
  Report Type: 
  Country: None (occurrence: None)
  Receive Date: 20100112
  Receipt Date: 20100104
  Transmission Date: 20100710
  Serious: No
  Sender: FDA-Public Use
  Company Number: US-BAYER-201010313NA

PATIENT
  Age: 38 Year
  Sex: Female
  Weight: 68 kg

DRUGS (2)
  1. MIRENA [Suspect]
     Indication: CONTRACEPTION
     Dosage: CONTINUOUS
     Route: 015
     Dates: start: 20091016, end: 20091115
  2. VITAMIN TAB [Concomitant]

REACTIONS (3)
  - DEVICE EXPULSION [None]
  - PREGNANCY [None]
  - VAGINAL HAEMORRHAGE [None]
